FAERS Safety Report 20096034 (Version 1)
Quarter: 2021Q4

REPORT INFORMATION
  Report Type: Spontaneous
  Country: TW (occurrence: TW)
  Receive Date: 20211122
  Receipt Date: 20211122
  Transmission Date: 20220303
  Serious: Yes (Other)
  Sender: FDA-Public Use
  Company Number: TW-SUNOVION-2021SUN004138

PATIENT
  Age: 52 Year
  Sex: Female

DRUGS (5)
  1. LURASIDONE HYDROCHLORIDE [Suspect]
     Active Substance: LURASIDONE HYDROCHLORIDE
     Indication: Bipolar I disorder
     Dosage: 10 MG, QD
     Route: 048
  2. LURASIDONE HYDROCHLORIDE [Suspect]
     Active Substance: LURASIDONE HYDROCHLORIDE
     Dosage: 20 MG, QD
     Route: 048
  3. LURASIDONE HYDROCHLORIDE [Suspect]
     Active Substance: LURASIDONE HYDROCHLORIDE
     Dosage: 40 MG, QD
     Route: 048
  4. CARBAMAZEPINE [Concomitant]
     Active Substance: CARBAMAZEPINE
     Indication: Affective disorder
     Dosage: 400 MG, QD
  5. CARBAMAZEPINE [Concomitant]
     Active Substance: CARBAMAZEPINE
     Dosage: 200 MG, QD

REACTIONS (9)
  - Hypokalaemia [Unknown]
  - Water intoxication [Unknown]
  - Depressed level of consciousness [Unknown]
  - Polydipsia [Unknown]
  - Depressive symptom [Unknown]
  - Blood creatinine increased [Unknown]
  - Hyponatraemia [Recovered/Resolved]
  - Psychomotor retardation [Unknown]
  - Prescribed underdose [Unknown]
